FAERS Safety Report 7017782-5 (Version None)
Quarter: 2010Q3

REPORT INFORMATION
  Report Type: 
  Country: None (occurrence: None)
  Receive Date: 20100928
  Receipt Date: 20100917
  Transmission Date: 20110219
  Serious: Yes (Other)
  Sender: FDA-Public Use
  Company Number: TR-ELI_LILLY_AND_COMPANY-TR201009007139

PATIENT

DRUGS (4)
  1. HUMULIN N [Suspect]
     Indication: GESTATIONAL DIABETES
     Dosage: 12 U, EACH EVENING
     Route: 064
     Dates: start: 20100717
  2. ACTRAPID HM /00646004/ [Concomitant]
     Dosage: 8 U, 3/D
     Route: 064
     Dates: start: 20100617
  3. IRON W/FOLIC ACID [Concomitant]
     Dosage: UNK, 2/D
     Route: 064
     Dates: start: 20100617
  4. MAGNESIUM [Concomitant]
     Dosage: UNK, 2/D
     Route: 064
     Dates: start: 20100617

REACTIONS (2)
  - CARDIAC DISORDER [None]
  - DRUG EXPOSURE DURING PREGNANCY [None]
